FAERS Safety Report 12480598 (Version 1)
Quarter: 2016Q2

REPORT INFORMATION
  Report Type: Spontaneous
  Country: GB (occurrence: GB)
  Receive Date: 20160620
  Receipt Date: 20160620
  Transmission Date: 20160815
  Serious: Yes (Other)
  Sender: FDA-Public Use
  Company Number: GB-GLAXOSMITHKLINE-GB2016GSK086865

PATIENT
  Age: 66 Year
  Sex: Male

DRUGS (1)
  1. SALBUTAMOL [Suspect]
     Active Substance: ALBUTEROL
     Indication: ASTHMA

REACTIONS (6)
  - Respiratory failure [Unknown]
  - Acute coronary syndrome [Unknown]
  - Sepsis [Unknown]
  - Lactic acidosis [Unknown]
  - Acute pulmonary oedema [Unknown]
  - Hypoxia [Unknown]
